FAERS Safety Report 7455212-X (Version None)
Quarter: 2011Q2

REPORT INFORMATION
  Report Type: 
  Country: None (occurrence: None)
  Receive Date: 20110503
  Receipt Date: 20110419
  Transmission Date: 20111010
  Serious: Yes (Other)
  Sender: FDA-Public Use
  Company Number: US-JNJFOC-20110408698

PATIENT
  Age: 12 Year
  Sex: Male

DRUGS (3)
  1. REMICADE [Suspect]
     Route: 042
  2. REMICADE [Suspect]
     Indication: CROHN'S DISEASE
     Route: 042
  3. REMICADE [Suspect]
     Route: 042

REACTIONS (8)
  - DYSPNOEA [None]
  - RESPIRATORY RATE INCREASED [None]
  - LIP SWELLING [None]
  - HEART RATE INCREASED [None]
  - ANTIBODY TEST POSITIVE [None]
  - HYPERTENSION [None]
  - DIARRHOEA [None]
  - INFUSION RELATED REACTION [None]
